FAERS Safety Report 6121954-1 (Version None)
Quarter: 2009Q1

REPORT INFORMATION
  Report Type: 
  Country: None (occurrence: None)
  Receive Date: 20090313
  Receipt Date: 20090302
  Transmission Date: 20090719
  Serious: Yes (Other)
  Sender: FDA-Public Use
  Company Number: 2009AP000740

PATIENT
  Age: 82 Year
  Sex: Female

DRUGS (2)
  1. RISPERIDONE [Suspect]
     Dosage: 4 MG;QD
  2. PERPHENAZINE [Concomitant]

REACTIONS (3)
  - CONDITION AGGRAVATED [None]
  - HALLUCINATION [None]
  - HYPOTHERMIA [None]
